FAERS Safety Report 5097729-1 (Version None)
Quarter: 2006Q3

REPORT INFORMATION
  Report Type: 
  Country: None (occurrence: None)
  Receive Date: 20060901
  Receipt Date: 20060815
  Transmission Date: 20061208
  Serious: Yes (Hospitalization)
  Sender: FDA-Public Use
  Company Number: US200608004187

PATIENT
  Age: 57 Year
  Sex: Male
  Weight: 136.1 kg

DRUGS (2)
  1. ZYPREXA [Suspect]
     Indication: DEPRESSION
     Dosage: 5 MG, ORAL
     Route: 048
     Dates: start: 20000201, end: 20050501
  2. PROZAC [Concomitant]

REACTIONS (5)
  - CORONARY ARTERY DISEASE [None]
  - DIABETES MELLITUS [None]
  - INSULIN RESISTANCE [None]
  - METABOLIC DISORDER [None]
  - MYOCARDIAL ISCHAEMIA [None]
